FAERS Safety Report 25613446 (Version 1)
Quarter: 2025Q3

REPORT INFORMATION
  Report Type: Spontaneous
  Country: US (occurrence: US)
  Receive Date: 20250728
  Receipt Date: 20250728
  Transmission Date: 20251020
  Serious: No
  Sender: INCYTE
  Company Number: US-EVENT-003111

PATIENT
  Age: 54 Year

DRUGS (2)
  1. OPZELURA [Suspect]
     Active Substance: RUXOLITINIB PHOSPHATE
     Indication: Vitiligo
     Dosage: UNK, BID
     Route: 065
  2. OPZELURA [Suspect]
     Active Substance: RUXOLITINIB PHOSPHATE
     Dosage: UNK, APPLIED TWICE A DAY
     Route: 065

REACTIONS (3)
  - Product availability issue [Unknown]
  - Product physical consistency issue [Recovered/Resolved]
  - Product dose omission issue [Recovered/Resolved]
